FAERS Safety Report 8181693-2 (Version None)
Quarter: 2012Q1

REPORT INFORMATION
  Report Type: 
  Country: None (occurrence: None)
  Receive Date: 20120302
  Receipt Date: 20110815
  Transmission Date: 20120608
  Serious: No
  Sender: FDA-Public Use
  Company Number: US-AMGEN-USASP2011041423

PATIENT
  Sex: Male

DRUGS (1)
  1. NPLATE [Suspect]
     Indication: PRODUCT USED FOR UNKNOWN INDICATION
     Dosage: 5 MUG/KG, QWK
     Dates: start: 20110614, end: 20110813

REACTIONS (5)
  - FATIGUE [None]
  - HEADACHE [None]
  - PYREXIA [None]
  - HYPERHIDROSIS [None]
  - PAIN [None]
